FAERS Safety Report 10190329 (Version 2)
Quarter: 2014Q2

REPORT INFORMATION
  Report Type: Report from Study
  Country: NO (occurrence: NO)
  Receive Date: 20140522
  Receipt Date: 20140522
  Transmission Date: 20141212
  Serious: Yes (Life-Threatening, Hospitalization, Other)
  Sender: FDA-Public Use
  Company Number: NO-009507513-1203USA02362

PATIENT
  Age: 59 Year
  Sex: Male
  Weight: 76 kg

DRUGS (4)
  1. EZETIMIBE (+) SIMVASTATIN [Suspect]
     Indication: ACUTE CORONARY SYNDROME
     Dosage: 10-40
     Route: 048
     Dates: start: 20061127, end: 20120115
  2. EMCONCOR [Concomitant]
     Dosage: TOTAL DAILY DOSE 2.5 MG
     Route: 048
     Dates: start: 20061120
  3. METFORMIN [Concomitant]
     Dosage: TOTAL DAILY DOSE 1000 MG
     Route: 048
     Dates: start: 20110201
  4. ALBYL-E [Concomitant]
     Dosage: TOTAL DAILY DOSE 75 MG
     Route: 048
     Dates: start: 20061119

REACTIONS (2)
  - Prostate cancer metastatic [Not Recovered/Not Resolved]
  - Abdominal pain [Recovered/Resolved]
